FAERS Safety Report 7809039-7 (Version None)
Quarter: 2011Q4

REPORT INFORMATION
  Report Type: 
  Country: None (occurrence: None)
  Receive Date: 20111012
  Receipt Date: 20111012
  Transmission Date: 20120403
  Serious: No
  Sender: FDA-Public Use
  Company Number: None

PATIENT
  Sex: Female
  Weight: 74.842 kg

DRUGS (1)
  1. CIPROFLOXACIN [Suspect]
     Dosage: 2 PILLS
     Route: 048
     Dates: start: 20110516, end: 20110522

REACTIONS (4)
  - GAIT DISTURBANCE [None]
  - FALL [None]
  - PAIN IN EXTREMITY [None]
  - TENDON PAIN [None]
